FAERS Safety Report 24000521 (Version 1)
Quarter: 2024Q2

REPORT INFORMATION
  Report Type: Spontaneous
  Country: MX (occurrence: MX)
  Receive Date: 20240621
  Receipt Date: 20240621
  Transmission Date: 20240716
  Serious: No
  Sender: FDA-Public Use
  Company Number: MX-PHARMAMAR-2024PM000079

PATIENT
  Age: 69 Year
  Sex: Female

DRUGS (4)
  1. ZEPZELCA [Suspect]
     Active Substance: LURBINECTEDIN
     Indication: Small cell lung cancer extensive stage
     Dosage: 3 MILLIGRAM/SQ. METER
     Route: 042
  2. TECENTRIQ [Concomitant]
     Active Substance: ATEZOLIZUMAB
  3. ETOPOSIDE [Concomitant]
     Active Substance: ETOPOSIDE
  4. CISPLATIN [Concomitant]
     Active Substance: CISPLATIN

REACTIONS (1)
  - Off label use [Unknown]
